FAERS Safety Report 5887394-5 (Version None)
Quarter: 2008Q3

REPORT INFORMATION
  Report Type: 
  Country: None (occurrence: None)
  Receive Date: 20080915
  Receipt Date: 20080908
  Transmission Date: 20090109
  Serious: Yes (Other)
  Sender: FDA-Public Use
  Company Number: 2008SP015723

PATIENT
  Age: 57 Year
  Sex: Female

DRUGS (3)
  1. PEG-INTRON [Suspect]
     Indication: HEPATITIS C
     Dosage: SC
     Route: 058
     Dates: start: 20080302
  2. REBETOL [Suspect]
     Indication: HEPATITIS C
     Dosage: PO
     Route: 048
     Dates: start: 20080302, end: 20080602
  3. RIBASPHERE [Suspect]
     Indication: HEPATITIS C
     Dates: start: 20080603

REACTIONS (11)
  - ABASIA [None]
  - ANAEMIA [None]
  - BODY TEMPERATURE DECREASED [None]
  - BONE INFARCTION [None]
  - GINGIVAL PAIN [None]
  - HYPERTHYROIDISM [None]
  - NEUROPATHY PERIPHERAL [None]
  - PAIN IN EXTREMITY [None]
  - PYREXIA [None]
  - SCREAMING [None]
  - SHOCK [None]
